FAERS Safety Report 19771719 (Version 1)
Quarter: 2021Q3

REPORT INFORMATION
  Report Type: Spontaneous
  Country: CA (occurrence: CA)
  Receive Date: 20210831
  Receipt Date: 20210831
  Transmission Date: 20211014
  Serious: Yes (Other)
  Sender: FDA-Public Use
  Company Number: CA-FRESENIUS KABI-FK202109230

PATIENT
  Age: 84 Year
  Sex: Male
  Weight: 83 kg

DRUGS (3)
  1. CEFTRIAXONE FOR INJECTION (MANUFACTURER UNKNOWN) [Suspect]
     Active Substance: CEFTRIAXONE
     Indication: LOCALISED INFECTION
     Route: 042
  2. GENTAMICIN (MANUFACTURER UNKNOWN) [Suspect]
     Active Substance: GENTAMICIN
     Indication: LOCALISED INFECTION
     Route: 042
  3. METRONIDAZOLE. [Suspect]
     Active Substance: METRONIDAZOLE
     Indication: LOCALISED INFECTION
     Route: 048

REACTIONS (1)
  - Acute kidney injury [Recovered/Resolved]
